FAERS Safety Report 6062845-4 (Version None)
Quarter: 2009Q1

REPORT INFORMATION
  Report Type: 
  Country: None (occurrence: None)
  Receive Date: 20090202
  Receipt Date: 20090202
  Transmission Date: 20090719
  Serious: Yes (Other)
  Sender: FDA-Public Use
  Company Number: None

PATIENT
  Age: 54 Year
  Sex: Male
  Weight: 99.7913 kg

DRUGS (1)
  1. VYTORIN [Suspect]
     Indication: BLOOD CHOLESTEROL
     Dosage: 1 DOSE NIGHTLY PO
     Route: 048
     Dates: start: 20070505, end: 20080213

REACTIONS (6)
  - BURNING SENSATION [None]
  - DISTURBANCE IN ATTENTION [None]
  - FEELING OF BODY TEMPERATURE CHANGE [None]
  - HYPERAESTHESIA [None]
  - INSOMNIA [None]
  - PAIN [None]
